FAERS Safety Report 8879251 (Version 1)
Quarter: 2012Q4

REPORT INFORMATION
  Report Type: 
  Country: US (occurrence: US)
  Receive Date: 20121101
  Receipt Date: 20121101
  Transmission Date: 20130627
  Serious: No
  Sender: FDA-Public Use
  Company Number: US-009507513-1210USA013135

PATIENT
  Age: 77 Year
  Sex: Male

DRUGS (8)
  1. TICE BCG LIVE [Suspect]
     Indication: BLADDER CANCER
     Dosage: UNK
     Route: 043
     Dates: start: 20120906, end: 20120906
  2. PROSCAR [Concomitant]
  3. CARDURA [Concomitant]
  4. URIBEL [Concomitant]
  5. OMEPRAZOLE [Concomitant]
  6. LOVASTATIN [Concomitant]
  7. HYDROCODONE [Concomitant]
  8. IBUPROFEN [Concomitant]

REACTIONS (1)
  - Blood creatinine increased [Unknown]
